FAERS Safety Report 24181159 (Version 3)
Quarter: 2024Q3

REPORT INFORMATION
  Report Type: Report from Study
  Country: GR (occurrence: GR)
  Receive Date: 20240806
  Receipt Date: 20240902
  Transmission Date: 20241016
  Serious: Yes (Death, Hospitalization, Other)
  Sender: ABBVIE
  Company Number: GR-ABBVIE-5867121

PATIENT
  Sex: Male
  Weight: 62 kg

DRUGS (6)
  1. CARBIDOPA\LEVODOPA [Suspect]
     Active Substance: CARBIDOPA\LEVODOPA
     Indication: Parkinson^s disease
     Dosage: MORNING DOSE: 13.5ML; CONTINUOUS RATE: 4.2ML/H; EXTRA DOSE: 2.0ML
     Route: 050
     Dates: start: 20211202
  2. CARBIDOPA\LEVODOPA [Suspect]
     Active Substance: CARBIDOPA\LEVODOPA
  3. LANTUS [Concomitant]
     Active Substance: INSULIN GLARGINE
     Indication: Diabetes mellitus
  4. RAMIPRIL [Concomitant]
     Active Substance: RAMIPRIL
     Indication: Hypertension
     Route: 048
  5. APIDRA [Concomitant]
     Active Substance: INSULIN GLULISINE
     Indication: Diabetes mellitus
     Dosage: UNIT DOSE: 2 TO 3 UNITS?ROUTE: INJECTION
  6. AMLODIPINE BESYLATE\VALSARTAN [Concomitant]
     Active Substance: AMLODIPINE BESYLATE\VALSARTAN
     Indication: Hypertension
     Dosage: UNIT DOSE: 5MG AND 160MG
     Route: 048

REACTIONS (6)
  - Septic shock [Fatal]
  - Fall [Recovered/Resolved]
  - Nosocomial infection [Unknown]
  - Femur fracture [Unknown]
  - Acute kidney injury [Unknown]
  - Respiratory failure [Unknown]
